FAERS Safety Report 4350137-0 (Version None)
Quarter: 2004Q2

REPORT INFORMATION
  Report Type: 
  Country: None (occurrence: None)
  Receive Date: 20040429
  Receipt Date: 20040423
  Transmission Date: 20050107
  Serious: Yes (Hospitalization)
  Sender: FDA-Public Use
  Company Number: US-ROCHE-365199

PATIENT
  Age: 49 Year
  Sex: Female

DRUGS (8)
  1. RIBAVIRIN [Suspect]
     Indication: HEPATITIS C
     Dosage: 400 MG IN THE MORNING AND 600 MG IN THE EVENING.
     Route: 065
  2. RIBAVIRIN [Suspect]
     Route: 065
  3. RIBAVIRIN [Suspect]
     Route: 065
  4. PEG-INTERFERON A-2A (RO 25-8310) [Concomitant]
     Dosage: WAS STOPPED AFTER DIAGNOSIS OF HAEMOGLOBINURIA AND RESTARTED 6 WEEKS LATER.
  5. ZIDOVUDINE [Concomitant]
     Indication: HIV INFECTION
     Dosage: STOPPED AFTER DIAGNOSIS OF HAEMOGLOBINURIA BUT THEN RESTARTED.
  6. TENOFOVIR [Concomitant]
     Indication: HIV INFECTION
     Dosage: STOPPED AFTER DIAGNOSIS OF HAEMOGLOBINURIA BUT THEN RESTARTED.
  7. ABACAVIR [Concomitant]
     Indication: HIV INFECTION
     Dosage: STOPPED AFTER DIAGNOSIS OF HAEMOGLOBINURIA BUT THEN RESTARTED.
  8. EFAVIRENZ [Concomitant]
     Indication: HIV INFECTION
     Dosage: STOPPED AFTER DIAGNOSIS OF HAEMOGLOBINURIA BUT THEN RESTARTED.

REACTIONS (1)
  - HAEMOGLOBINURIA [None]
